FAERS Safety Report 25238091 (Version 1)
Quarter: 2025Q2

REPORT INFORMATION
  Report Type: Spontaneous
  Country: FR (occurrence: FR)
  Receive Date: 20250425
  Receipt Date: 20250425
  Transmission Date: 20250717
  Serious: Yes (Death, Hospitalization)
  Sender: CHEPLAPHARM
  Company Number: None

PATIENT
  Age: 53 Year
  Sex: Female
  Weight: 88 kg

DRUGS (12)
  1. OLANZAPINE [Suspect]
     Active Substance: OLANZAPINE
     Indication: Bipolar disorder
     Dosage: DAILY DOSE: 20 MILLIGRAM
     Route: 048
     Dates: start: 20241230
  2. OLANZAPINE [Suspect]
     Active Substance: OLANZAPINE
     Indication: Bipolar disorder
     Dosage: DAILY DOSE: 5 MILLIGRAM
     Route: 048
     Dates: end: 20241229
  3. BIPERIDEN [Suspect]
     Active Substance: BIPERIDEN
     Indication: Prophylaxis
     Dosage: PROLONGED RELEASE COATED TABLET?DAILY DOSE: 1 DOSAGE FORM
     Route: 048
     Dates: start: 20241230, end: 20250105
  4. DIAZEPAM [Suspect]
     Active Substance: DIAZEPAM
     Indication: Bipolar disorder
     Dosage: DAILY DOSE: 60 DROP
     Route: 048
     Dates: end: 20250104
  5. LAMOTRIGINE [Suspect]
     Active Substance: LAMOTRIGINE
     Indication: Bipolar disorder
     Dosage: DAILY DOSE: 50 MILLIGRAM
     Route: 048
     Dates: start: 20241230, end: 20250102
  6. LAMOTRIGINE [Suspect]
     Active Substance: LAMOTRIGINE
     Indication: Bipolar disorder
     Dosage: DAILY DOSE: 100 MILLIGRAM
     Route: 048
     Dates: start: 20250103, end: 20250104
  7. LOXAPINE [Suspect]
     Active Substance: LOXAPINE
     Indication: Bipolar disorder
     Dosage: DAILY DOSE: 100 MILLIGRAM
     Route: 048
     Dates: start: 20241230, end: 20250104
  8. ZOLPIDEM [Suspect]
     Active Substance: ZOLPIDEM TARTRATE
     Indication: Sleep disorder
     Dosage: DAILY DOSE: 10 MILLIGRAM
     Route: 048
     Dates: start: 20250103, end: 20250104
  9. DULOXETINE [Suspect]
     Active Substance: DULOXETINE
     Dosage: DAILY DOSE: 30 MILLIGRAM
  10. OXAZEPAM [Suspect]
     Active Substance: OXAZEPAM
     Dosage: DAILY DOSE: 25 MILLIGRAM
  11. ACETAMINOPHEN [Concomitant]
     Active Substance: ACETAMINOPHEN
     Route: 048
     Dates: start: 20250103
  12. ZOPICLONE [Concomitant]
     Active Substance: ZOPICLONE
     Dosage: DAILY DOSE: 7.5 MILLIGRAM
     Route: 048
     Dates: end: 20250102

REACTIONS (11)
  - Cardio-respiratory arrest [Fatal]
  - Agitation [Recovered/Resolved]
  - Pain in extremity [Unknown]
  - Vomiting [Unknown]
  - Hypotonia [Unknown]
  - Loss of consciousness [Unknown]
  - Hyperventilation [Unknown]
  - Eye haemorrhage [Unknown]
  - Ear haemorrhage [Unknown]
  - Inappropriate schedule of product administration [Unknown]
  - Dyspnoea [Unknown]

NARRATIVE: CASE EVENT DATE: 20250104
